FAERS Safety Report 6697462-6 (Version None)
Quarter: 2010Q2

REPORT INFORMATION
  Report Type: 
  Country: None (occurrence: None)
  Receive Date: 20100426
  Receipt Date: 20100415
  Transmission Date: 20101027
  Serious: Yes (Other)
  Sender: FDA-Public Use
  Company Number: US-JNJCH-2010009554

PATIENT
  Age: 82 Year
  Sex: Female
  Weight: 54.4 kg

DRUGS (1)
  1. COOL MINT LISTERINE [Suspect]
     Indication: DENTAL DISORDER PROPHYLAXIS
     Dosage: TEXT:2 TIMES PER DAY
     Route: 048

REACTIONS (2)
  - APPLICATION SITE PAIN [None]
  - TONGUE EXFOLIATION [None]
